FAERS Safety Report 19868565 (Version 1)
Quarter: 2021Q3

REPORT INFORMATION
  Report Type: Spontaneous
  Country: GB (occurrence: GB)
  Receive Date: 20210921
  Receipt Date: 20210921
  Transmission Date: 20211014
  Serious: Yes (Other)
  Sender: FDA-Public Use
  Company Number: GB-BAXTER-2021BAX028932

PATIENT
  Sex: Female

DRUGS (1)
  1. SODIUM CHLORIDE INTRAVENOUS INFUSION BP 0.9% W/V [Suspect]
     Active Substance: SODIUM CHLORIDE
     Indication: ILL-DEFINED DISORDER
     Route: 042

REACTIONS (2)
  - Urinary retention [Unknown]
  - Dehydration [Unknown]

NARRATIVE: CASE EVENT DATE: 20210909
